FAERS Safety Report 4780562-5 (Version None)
Quarter: 2005Q3

REPORT INFORMATION
  Report Type: 
  Country: None (occurrence: None)
  Receive Date: 20050926
  Receipt Date: 20050913
  Transmission Date: 20060218
  Serious: Yes (Hospitalization)
  Sender: FDA-Public Use
  Company Number: 2005BI017094

PATIENT
  Age: 48 Year
  Sex: Female

DRUGS (2)
  1. AVONEX [Suspect]
     Indication: MULTIPLE SCLEROSIS
     Dosage: IM
     Route: 030
     Dates: start: 20040717
  2. AVONEX [Suspect]
     Indication: ILL-DEFINED DISORDER
     Dosage: IM
     Route: 030
     Dates: start: 20050801

REACTIONS (1)
  - MENINGITIS [None]
